FAERS Safety Report 17371915 (Version 6)
Quarter: 2020Q1

REPORT INFORMATION
  Report Type: Report from Study
  Country: DE (occurrence: DE)
  Receive Date: 20200205
  Receipt Date: 20200310
  Transmission Date: 20200409
  Serious: Yes (Life-Threatening, Hospitalization)
  Sender: FDA-Public Use
  Company Number: DE-CELGENEUS-DEU-20200110832

PATIENT
  Age: 50 Year
  Sex: Female
  Weight: 80 kg

DRUGS (24)
  1. REVLIMID [Suspect]
     Active Substance: LENALIDOMIDE
     Indication: PLASMA CELL MYELOMA
     Dosage: 25 MILLIGRAM
     Route: 048
     Dates: start: 20191205, end: 20200122
  2. NITROLINGUAL [Concomitant]
     Active Substance: NITROGLYCERIN
     Indication: CATHETERISATION CARDIAC
     Route: 065
     Dates: start: 20200126, end: 20200126
  3. NACL [Concomitant]
     Active Substance: SODIUM CHLORIDE
     Indication: CATHETERISATION CARDIAC
     Route: 041
     Dates: start: 20200126, end: 20200126
  4. DEXAMETHASONE. [Suspect]
     Active Substance: DEXAMETHASONE
     Dosage: 40 MILLIGRAM
     Route: 048
     Dates: start: 20200206
  5. RANITIDINE. [Concomitant]
     Active Substance: RANITIDINE
     Indication: CATHETERISATION CARDIAC
     Route: 065
     Dates: start: 20200126, end: 20200126
  6. REVLIMID [Suspect]
     Active Substance: LENALIDOMIDE
     Dosage: 25 MILLIGRAM
     Route: 048
     Dates: start: 20200122, end: 20200130
  7. REVLIMID [Suspect]
     Active Substance: LENALIDOMIDE
     Dosage: 25 MILLIGRAM
     Route: 048
     Dates: start: 20200206
  8. RAMIPRIL. [Concomitant]
     Active Substance: RAMIPRIL
     Indication: HYPERTENSION
     Dosage: 5 MILLIGRAM
     Route: 048
     Dates: start: 20191220, end: 20200126
  9. FENISTIL [Concomitant]
     Active Substance: DIMETHINDENE
     Indication: CATHETERISATION CARDIAC
     Route: 065
     Dates: start: 20200126, end: 20200126
  10. DEXAMETHASONE. [Suspect]
     Active Substance: DEXAMETHASONE
     Dosage: 40 MILLIGRAM
     Route: 048
     Dates: start: 20200123, end: 20200130
  11. KYPROLIS [Suspect]
     Active Substance: CARFILZOMIB
     Dosage: 68.76 MILLIGRAM
     Route: 041
     Dates: start: 20200117, end: 20200130
  12. PANTOPAZOL [Concomitant]
     Indication: PROPHYLAXIS
     Dosage: 40 MILLIGRAM
     Route: 048
     Dates: start: 20191213
  13. ASA [Concomitant]
     Active Substance: ASPIRIN
     Indication: THROMBOSIS PROPHYLAXIS
     Dosage: 100 MILLIGRAM
     Route: 048
     Dates: start: 20191213
  14. MORPHINE SULFATE. [Concomitant]
     Active Substance: MORPHINE SULFATE
     Indication: CATHETERISATION CARDIAC
     Route: 065
     Dates: start: 20200126, end: 20200126
  15. HEPARIN [Concomitant]
     Active Substance: HEPARIN SODIUM
     Indication: CATHETERISATION CARDIAC
     Route: 065
     Dates: start: 20200126, end: 20200126
  16. KYPROLIS [Suspect]
     Active Substance: CARFILZOMIB
     Dosage: 68.76 MILLIGRAM
     Route: 041
     Dates: start: 20191212, end: 20200117
  17. OSELTAMIVIR [Concomitant]
     Active Substance: OSELTAMIVIR
     Indication: ANTIVIRAL PROPHYLAXIS
     Dosage: 75 MILLIGRAM
     Route: 048
     Dates: start: 20200128
  18. KYPROLIS [Suspect]
     Active Substance: CARFILZOMIB
     Indication: PLASMA CELL MYELOMA
     Dosage: 38.2 MILLIGRAM
     Route: 041
     Dates: start: 20191205, end: 20191206
  19. COTRIMOXAZOL [Concomitant]
     Active Substance: SULFAMETHOXAZOLE\TRIMETHOPRIM
     Indication: INFECTION PROPHYLAXIS
     Dosage: 1920 MILLIGRAM
     Route: 048
     Dates: start: 20191205
  20. METHYLPREDNISOLONE. [Concomitant]
     Active Substance: METHYLPREDNISOLONE
     Indication: CATHETERISATION CARDIAC
     Route: 065
     Dates: start: 20200126, end: 20200126
  21. DEXAMETHASONE. [Suspect]
     Active Substance: DEXAMETHASONE
     Indication: PLASMA CELL MYELOMA
     Dosage: 40 MILLIGRAM
     Route: 048
     Dates: start: 20191205, end: 20200123
  22. KYPROLIS [Suspect]
     Active Substance: CARFILZOMIB
     Dosage: 38.2 MILLIGRAM
     Route: 041
     Dates: start: 20200206
  23. ACICLOVIR [Concomitant]
     Active Substance: ACYCLOVIR
     Indication: INFECTION PROPHYLAXIS
     Dosage: 800 MILLIGRAM
     Route: 048
     Dates: start: 20191205
  24. XYLOCITINE [Concomitant]
     Indication: CATHETERISATION CARDIAC
     Route: 065
     Dates: start: 20200126, end: 20200126

REACTIONS (2)
  - Acute myocardial infarction [Recovered/Resolved]
  - Pyrexia [Recovered/Resolved]

NARRATIVE: CASE EVENT DATE: 20200126
